FAERS Safety Report 6940813-5 (Version None)
Quarter: 2010Q3

REPORT INFORMATION
  Report Type: 
  Country: None (occurrence: None)
  Receive Date: 20100825
  Receipt Date: 20100819
  Transmission Date: 20110219
  Serious: Yes (Death)
  Sender: FDA-Public Use
  Company Number: US-GILEAD-2010-0031217

PATIENT
  Age: 64 Year
  Sex: Female
  Weight: 71.732 kg

DRUGS (13)
  1. LETAIRIS [Suspect]
     Indication: PULMONARY ARTERIAL HYPERTENSION
     Route: 048
     Dates: start: 20071212, end: 20100813
  2. TYVASO [Concomitant]
  3. REVATIO [Concomitant]
  4. OXYGEN [Concomitant]
  5. SPIRONOLACTONE [Concomitant]
  6. PREDNISONE [Concomitant]
  7. ENALAPRIL MALEATE [Concomitant]
  8. NORVASC [Concomitant]
  9. FERROUS SULFATE [Concomitant]
  10. ACTONEL [Concomitant]
  11. ZYRTEC [Concomitant]
  12. PRILOSEC [Concomitant]
  13. OYSCO [Concomitant]

REACTIONS (1)
  - DEATH [None]
